FAERS Safety Report 6259405-9 (Version None)
Quarter: 2009Q3

REPORT INFORMATION
  Report Type: 
  Country: None (occurrence: None)
  Receive Date: 20090706
  Receipt Date: 20090630
  Transmission Date: 20100115
  Serious: Yes (Death, Hospitalization)
  Sender: FDA-Public Use
  Company Number: 2009US000005

PATIENT
  Age: 70 Year
  Sex: Female

DRUGS (3)
  1. ENTEREG [Suspect]
     Indication: POSTOPERATIVE ILEUS
     Dosage: 12 MG; PO
     Route: 048
     Dates: start: 20090223, end: 20090226
  2. COUMADIN [Concomitant]
  3. METOPROLOL [Concomitant]

REACTIONS (2)
  - ANASTOMOTIC COMPLICATION [None]
  - GASTROINTESTINAL ANASTOMOTIC LEAK [None]
